FAERS Safety Report 8743257 (Version 2)
Quarter: 2012Q4

REPORT INFORMATION
  Report Type: 
  Country: GB (occurrence: GB)
  Receive Date: 20120824
  Receipt Date: 20121213
  Transmission Date: 20130627
  Serious: Yes (Disabling, Other)
  Sender: FDA-Public Use
  Company Number: GB-BAYER-2012-087876

PATIENT
  Age: 44 Year
  Sex: Male
  Weight: 73 kg

DRUGS (3)
  1. CIPROFLOXACIN [Suspect]
     Indication: EPIDIDYMITIS
     Dosage: 500 mg, BID
     Route: 048
     Dates: start: 20120802, end: 20120808
  2. FLUOXETINE [Concomitant]
     Indication: DEPRESSION
     Dosage: 20 mg, UNK
  3. LANSOPRAZOLE [Concomitant]
     Indication: GASTRITIS
     Dosage: 15 mg, QD
     Dates: start: 201012

REACTIONS (9)
  - Agitation [Unknown]
  - Anger [Unknown]
  - Depression [Unknown]
  - Insomnia [Unknown]
  - Malaise [Unknown]
  - Headache [Recovered/Resolved]
  - Muscle spasms [Recovering/Resolving]
  - Tendon pain [Recovering/Resolving]
  - Violence-related symptom [Unknown]
